FAERS Safety Report 16750151 (Version 5)
Quarter: 2020Q2

REPORT INFORMATION
  Report Type: Spontaneous
  Country: US (occurrence: US)
  Receive Date: 20190828
  Receipt Date: 20200602
  Transmission Date: 20200713
  Serious: No
  Sender: FDA-Public Use
  Company Number: US-PFIZER INC-2019354696

PATIENT
  Age: 62 Year
  Sex: Female
  Weight: 55.79 kg

DRUGS (2)
  1. PREMARIN [Suspect]
     Active Substance: ESTROGENS, CONJUGATED
     Indication: MENOPAUSAL SYMPTOMS
     Dosage: 2.5 MG, DAILY (TAKES 2 PILLS TO MAKE 2.5MG PER DAY)
     Route: 048
  2. PREMARIN [Suspect]
     Active Substance: ESTROGENS, CONJUGATED
     Dosage: 1 DF, 1X/DAY
     Route: 048
     Dates: end: 20200517

REACTIONS (5)
  - Malaise [Unknown]
  - Disturbance in attention [Unknown]
  - Drug ineffective [Unknown]
  - Feeling abnormal [Unknown]
  - Off label use [Unknown]
